FAERS Safety Report 7389206-X (Version None)
Quarter: 2011Q1

REPORT INFORMATION
  Report Type: 
  Country: None (occurrence: None)
  Receive Date: 20110329
  Receipt Date: 20110329
  Transmission Date: 20110831
  Serious: Yes (Hospitalization, Other)
  Sender: FDA-Public Use
  Company Number: None

PATIENT
  Sex: Male
  Weight: 90.2658 kg

DRUGS (2)
  1. PROPOXYPHENE HYDROCHLORIDE [Suspect]
     Indication: SCIATIC NERVE INJURY
     Dosage: 3 TIMES A DAY MOUTH 30 PILLS 3 TIMES A DAY MOUTH
     Route: 048
     Dates: start: 20100901, end: 20101030
  2. PROPOXYPHENE HYDROCHLORIDE [Suspect]
     Indication: SCIATIC NERVE INJURY
     Dosage: 3 TIMES A DAY MOUTH 30 PILLS 3 TIMES A DAY MOUTH
     Route: 048
     Dates: start: 20101030

REACTIONS (2)
  - DIZZINESS [None]
  - PRODUCT QUALITY ISSUE [None]
